FAERS Safety Report 5717793-3 (Version None)
Quarter: 2008Q2

REPORT INFORMATION
  Report Type: 
  Country: None (occurrence: None)
  Receive Date: 20080425
  Receipt Date: 20080410
  Transmission Date: 20081010
  Serious: Yes (Disabling, Other)
  Sender: FDA-Public Use
  Company Number: US-BAUSCH-2006BL006431

PATIENT
  Age: 42 Year
  Sex: Female

DRUGS (4)
  1. FLUOCINOLONE ACETONIDE [Suspect]
     Indication: UVEITIS
     Route: 047
     Dates: start: 20010523, end: 20061009
  2. ALEVE [Concomitant]
     Route: 048
  3. CENTRUM [Concomitant]
     Indication: VITAMIN SUPPLEMENTATION
     Route: 048
  4. PRED FORTE [Concomitant]
     Route: 047

REACTIONS (20)
  - BLINDNESS UNILATERAL [None]
  - CHOROIDAL DETACHMENT [None]
  - CILIARY BODY DISORDER [None]
  - CORNEAL DISORDER [None]
  - EYE INFLAMMATION [None]
  - HAEMORRHAGE [None]
  - HYPOTONIA [None]
  - IMPLANT EXPULSION [None]
  - IRIDOCYCLITIS [None]
  - KERATOPATHY [None]
  - LACRIMATION INCREASED [None]
  - MECHANICAL COMPLICATION OF IMPLANT [None]
  - OPTIC NERVE DISORDER [None]
  - PHOTOPHOBIA [None]
  - QUALITY OF LIFE DECREASED [None]
  - RETINAL DEGENERATION [None]
  - SCLERITIS [None]
  - SUTURE RUPTURE [None]
  - UVEITIS [None]
  - VITREOUS FLOATERS [None]
